FAERS Safety Report 12803399 (Version 3)
Quarter: 2016Q4

REPORT INFORMATION
  Report Type: Spontaneous
  Country: CH (occurrence: CH)
  Receive Date: 20161003
  Receipt Date: 20161027
  Transmission Date: 20170207
  Serious: Yes (Death)
  Sender: FDA-Public Use
  Company Number: CH-LPDUSPRD-20160857

PATIENT
  Sex: Female
  Weight: 2.6 kg

DRUGS (2)
  1. FERINJECT [Suspect]
     Active Substance: FERRIC CARBOXYMALTOSE
     Dosage: 500 MG OVER 40 MINUTES
     Route: 064
     Dates: start: 20160823, end: 20160823
  2. GYNIPRAL [Concomitant]
     Dosage: 4 MCG
     Route: 064
     Dates: start: 20160823

REACTIONS (2)
  - Exposure during pregnancy [Unknown]
  - Foetal death [Fatal]

NARRATIVE: CASE EVENT DATE: 20160824
